FAERS Safety Report 4675246-8 (Version None)
Quarter: 2005Q2

REPORT INFORMATION
  Report Type: 
  Country: None (occurrence: None)
  Receive Date: 20050527
  Receipt Date: 20050523
  Transmission Date: 20051028
  Serious: Yes (Hospitalization)
  Sender: FDA-Public Use
  Company Number: PHRM2005FR01609

PATIENT
  Age: 80 Year
  Sex: Male

DRUGS (3)
  1. ZOMETA [Suspect]
     Indication: MULTIPLE MYELOMA
     Dosage: 4 MG, QMO
     Route: 042
  2. CHEMOTHERAPEUTICS,OTHER [Concomitant]
     Indication: MULTIPLE MYELOMA
  3. CORTICOSTEROIDS [Concomitant]
     Indication: MULTIPLE MYELOMA

REACTIONS (2)
  - ASEPTIC NECROSIS BONE [None]
  - PAIN IN JAW [None]
